FAERS Safety Report 8989748 (Version 5)
Quarter: 2013Q2

REPORT INFORMATION
  Report Type: Spontaneous
  Country: GB (occurrence: GB)
  Receive Date: 20121228
  Receipt Date: 20130603
  Transmission Date: 20140414
  Serious: Yes (Hospitalization, Other)
  Sender: FDA-Public Use
  Company Number: GB-JNJFOC-20121210838

PATIENT
  Age: 55 Year
  Sex: Female

DRUGS (6)
  1. ACETAMINOPHEN/CODEINE [Suspect]
     Indication: ANALGESIC THERAPY
     Route: 065
  2. SOLPADEINE HEADACHE SOLUBLE [Suspect]
     Indication: ANALGESIC THERAPY
     Route: 065
  3. SUTENT [Suspect]
     Indication: METASTATIC RENAL CELL CARCINOMA
     Route: 065
     Dates: start: 2010
  4. SUTENT [Suspect]
     Indication: METASTATIC RENAL CELL CARCINOMA
     Route: 065
  5. SUTENT [Suspect]
     Indication: METASTATIC RENAL CELL CARCINOMA
     Route: 065
  6. ANTIHYPERTENSIVES [Concomitant]

REACTIONS (18)
  - Asthenia [Unknown]
  - Constipation [Unknown]
  - Diarrhoea [Unknown]
  - Fatigue [Unknown]
  - Hair colour changes [Not Recovered/Not Resolved]
  - Deafness [Unknown]
  - Nausea [Unknown]
  - Epistaxis [Unknown]
  - Oedema [Unknown]
  - Platelet count decreased [Unknown]
  - Blood pressure increased [Unknown]
  - Rash [Unknown]
  - Skin exfoliation [Unknown]
  - Somnolence [Unknown]
  - Blood sodium increased [Unknown]
  - Weight increased [Unknown]
  - Fluid retention [Unknown]
  - Electrolyte imbalance [Unknown]
